FAERS Safety Report 6356219-6 (Version None)
Quarter: 2009Q3

REPORT INFORMATION
  Report Type: 
  Country: None (occurrence: None)
  Receive Date: 20090911
  Receipt Date: 20090911
  Transmission Date: 20100115
  Serious: No
  Sender: FDA-Public Use
  Company Number: None

PATIENT
  Age: 70 Year
  Sex: Female
  Weight: 49.4421 kg

DRUGS (1)
  1. VYTORIN [Suspect]
     Indication: TYPE IIA HYPERLIPIDAEMIA
     Dosage: VYTORIN 10/40 1 DAILY PO
     Route: 048

REACTIONS (2)
  - MALABSORPTION [None]
  - WEIGHT DECREASED [None]
